FAERS Safety Report 7671518-3 (Version None)
Quarter: 2011Q3

REPORT INFORMATION
  Report Type: 
  Country: None (occurrence: None)
  Receive Date: 20110809
  Receipt Date: 20110804
  Transmission Date: 20111222
  Serious: Yes (Hospitalization)
  Sender: FDA-Public Use
  Company Number: FR-KINGPHARMUSA00001-K201100917

PATIENT
  Age: 45 Year
  Sex: Male

DRUGS (7)
  1. PLAVIX [Concomitant]
  2. ALTACE [Suspect]
     Dosage: UNKNOWN
     Route: 048
  3. SERUM LIPID REDUCING AGENTS [Concomitant]
  4. LANTUS [Suspect]
     Indication: DIABETES MELLITUS
     Dosage: UNKNOWN
     Route: 065
  5. APIDRA [Suspect]
     Indication: DIABETES MELLITUS
     Dosage: UNKNOWN
     Route: 065
  6. BETA BLOCKING AGENTS [Concomitant]
  7. ASPIRIN [Concomitant]

REACTIONS (2)
  - RASH PRURITIC [None]
  - CHEST PAIN [None]
